FAERS Safety Report 12515732 (Version 1)
Quarter: 2016Q2

REPORT INFORMATION
  Report Type: Report from Study
  Country: US (occurrence: US)
  Receive Date: 20160630
  Receipt Date: 20160630
  Transmission Date: 20160815
  Serious: Yes (Other)
  Sender: FDA-Public Use
  Company Number: US-BAYER-2016-109813

PATIENT
  Age: 35 Year
  Sex: Male

DRUGS (2)
  1. ADEMPAS [Suspect]
     Active Substance: RIOCIGUAT
     Indication: PULMONARY ARTERIAL HYPERTENSION
     Dosage: 1.5 MG, TID
     Route: 048
     Dates: start: 20160531
  2. ADEMPAS [Suspect]
     Active Substance: RIOCIGUAT
     Indication: PULMONARY ARTERIAL HYPERTENSION
     Dosage: 1.5 MG, TID
     Route: 048
     Dates: start: 20160503

REACTIONS (12)
  - Dizziness [None]
  - Palpitations [None]
  - Nasal congestion [None]
  - Cough [None]
  - Gastrooesophageal reflux disease [Recovering/Resolving]
  - Ascites [None]
  - Diarrhoea [None]
  - Headache [None]
  - Dizziness [None]
  - Chest pain [None]
  - Palpitations [None]
  - Nasopharyngitis [None]

NARRATIVE: CASE EVENT DATE: 20160531
